FAERS Safety Report 4696192-X (Version None)
Quarter: 2005Q2

REPORT INFORMATION
  Report Type: 
  Country: None (occurrence: None)
  Receive Date: 20050620
  Receipt Date: 20050606
  Transmission Date: 20051028
  Serious: Yes (Hospitalization)
  Sender: FDA-Public Use
  Company Number: 2005084930

PATIENT
  Age: 50 Year
  Sex: Male

DRUGS (3)
  1. IRINOTECAN HCL [Suspect]
     Indication: GASTRIC CANCER
     Dosage: 72 MG (CYCLICAL) INTRAVENOUS
     Route: 042
     Dates: start: 20050217, end: 20050428
  2. CISPLATIN [Suspect]
     Indication: GASTRIC CANCER
     Dosage: 40 MG CYCLICAL INTRAVENOUS
     Route: 042
     Dates: start: 20050217, end: 20050428
  3. FLUOROURACIL [Suspect]
     Indication: GASTRIC CANCER
     Dosage: 264 INTRAVENOUS
     Route: 042
     Dates: start: 20050217, end: 20050505

REACTIONS (6)
  - ABSCESS [None]
  - FEBRILE NEUTROPENIA [None]
  - GASTRO-INTESTINAL FISTULA [None]
  - INFECTION [None]
  - MASS [None]
  - TUMOUR NECROSIS [None]
